FAERS Safety Report 4727167-X (Version None)
Quarter: 2005Q3

REPORT INFORMATION
  Report Type: 
  Country: None (occurrence: None)
  Receive Date: 20050728
  Receipt Date: 20050706
  Transmission Date: 20060218
  Serious: Yes (Hospitalization)
  Sender: FDA-Public Use
  Company Number: BE-BRISTOL-MYERS SQUIBB COMPANY-13027529

PATIENT
  Age: 62 Year
  Sex: Male
  Weight: 70 kg

DRUGS (10)
  1. CISPLATIN [Suspect]
     Indication: NON-SMALL CELL LUNG CANCER
     Route: 042
     Dates: start: 20050425
  2. ALIMTA [Suspect]
     Indication: NON-SMALL CELL LUNG CANCER
     Route: 042
     Dates: start: 20050425
  3. ACETAMINOPHEN [Concomitant]
     Indication: PAIN
     Dates: start: 20050101
  4. NADROPARIN CALCIUM [Concomitant]
     Indication: EMBOLISM
     Dates: start: 19920101
  5. SIMVASTATIN [Concomitant]
     Indication: HYPERCHOLESTEROLAEMIA
  6. PIRACETAM [Concomitant]
     Indication: HYPERHIDROSIS
     Route: 048
     Dates: start: 20050101
  7. FOLIC ACID [Concomitant]
     Dates: start: 20050418
  8. OL-AMINE [Concomitant]
     Dates: start: 20050418
  9. VITAMIN B-12 [Concomitant]
  10. DEXAMETHASONE [Concomitant]

REACTIONS (2)
  - PERIPHERAL ISCHAEMIA [None]
  - RENAL INFARCT [None]
